FAERS Safety Report 7264134-9 (Version None)
Quarter: 2011Q1

REPORT INFORMATION
  Report Type: 
  Country: None (occurrence: None)
  Receive Date: 20110131
  Receipt Date: 20110119
  Transmission Date: 20110831
  Serious: Yes (Hospitalization)
  Sender: FDA-Public Use
  Company Number: JP-PFIZER INC-2011013450

PATIENT
  Age: 66 Year
  Sex: Female

DRUGS (1)
  1. CADUET [Suspect]
     Dosage: UNK
     Route: 048
     Dates: start: 20101201

REACTIONS (1)
  - AORTIC DISSECTION [None]
